FAERS Safety Report 5269377-1 (Version None)
Quarter: 2007Q1

REPORT INFORMATION
  Report Type: 
  Country: None (occurrence: None)
  Receive Date: 20070319
  Receipt Date: 20070309
  Transmission Date: 20070707
  Serious: Yes (Other)
  Sender: FDA-Public Use
  Company Number: JP-PFIZER INC-2007019298

PATIENT

DRUGS (2)
  1. XANAX [Suspect]
     Indication: HYPERHIDROSIS
     Dosage: TEXT:UNKNOWN
     Route: 048
  2. PRO-BANTHINE [Suspect]
     Indication: HYPERHIDROSIS
     Dosage: TEXT:UNKNOWN-FREQ:AS NEEDED
     Route: 048

REACTIONS (1)
  - INTRAOCULAR PRESSURE INCREASED [None]
